FAERS Safety Report 10175676 (Version 1)
Quarter: 2014Q2

REPORT INFORMATION
  Report Type: Spontaneous
  Country: US (occurrence: US)
  Receive Date: 20140516
  Receipt Date: 20140516
  Transmission Date: 20141212
  Serious: Yes (Other)
  Sender: FDA-Public Use
  Company Number: US-ROCHE-1400652

PATIENT
  Sex: Female

DRUGS (4)
  1. XELODA [Suspect]
     Indication: COLON CANCER
     Route: 048
     Dates: start: 20140416
  2. LEVOTHYROXINE [Concomitant]
  3. ONDANSETRON [Concomitant]
  4. PROCHLORPERAZINE [Concomitant]

REACTIONS (8)
  - Stomatitis [Unknown]
  - Nausea [Unknown]
  - Vomiting [Unknown]
  - Aphagia [Unknown]
  - Diarrhoea [Unknown]
  - Haematochezia [Unknown]
  - Transfusion [Unknown]
  - Fatigue [Unknown]
